FAERS Safety Report 18913202 (Version 12)
Quarter: 2025Q2

REPORT INFORMATION
  Report Type: Report from Study
  Country: CO (occurrence: CO)
  Receive Date: 20210218
  Receipt Date: 20250528
  Transmission Date: 20250717
  Serious: Yes (Other)
  Sender: TAKEDA
  Company Number: CO-TAKEDA-2021TUS010717

PATIENT
  Age: 54 Year
  Sex: Female
  Weight: 65.76 kg

DRUGS (11)
  1. ICATIBANT [Suspect]
     Active Substance: ICATIBANT ACETATE
     Indication: Hereditary angioedema
  2. ICATIBANT [Suspect]
     Active Substance: ICATIBANT ACETATE
  3. LANADELUMAB [Suspect]
     Active Substance: LANADELUMAB
     Indication: Hereditary angioedema
     Dosage: 300 MILLIGRAM, Q2WEEKS
  4. LANADELUMAB [Suspect]
     Active Substance: LANADELUMAB
     Dosage: 300 MILLIGRAM, 2/MONTH
     Dates: start: 2016
  5. LANADELUMAB [Suspect]
     Active Substance: LANADELUMAB
  6. LANADELUMAB [Suspect]
     Active Substance: LANADELUMAB
     Dosage: 300 MILLIGRAM, 2/MONTH
  7. NITROFURANTOIN [Concomitant]
     Active Substance: NITROFURANTOIN
     Indication: Product used for unknown indication
     Dosage: 100 MILLIGRAM, Q8HR
  8. ATORVASTATIN [Concomitant]
     Active Substance: ATORVASTATIN
     Indication: Product used for unknown indication
     Dosage: 40 MILLIGRAM, QD
  9. ASCORBIC ACID [Concomitant]
     Active Substance: ASCORBIC ACID
     Indication: Product used for unknown indication
     Dosage: 500 MILLIGRAM, QD
  10. DANAZOL [Concomitant]
     Active Substance: DANAZOL
     Indication: Product used for unknown indication
     Dosage: 200 MILLIGRAM, QD
  11. TRANEXAMIC ACID [Concomitant]
     Active Substance: TRANEXAMIC ACID
     Indication: Product used for unknown indication
     Dosage: 500 MILLIGRAM, QD

REACTIONS (12)
  - Cystitis [Unknown]
  - Hyperlipidaemia [Unknown]
  - Body height abnormal [Unknown]
  - Weight fluctuation [Unknown]
  - Weight increased [Unknown]
  - Body height increased [Unknown]
  - Weight decreased [Unknown]
  - Arthropod sting [Unknown]
  - Product distribution issue [Unknown]
  - Product use issue [Unknown]
  - Product label issue [Unknown]
  - Hereditary angioedema [Not Recovered/Not Resolved]

NARRATIVE: CASE EVENT DATE: 20210211
